FAERS Safety Report 11761142 (Version 1)
Quarter: 2015Q4

REPORT INFORMATION
  Report Type: Spontaneous
  Country: US (occurrence: US)
  Receive Date: 20151120
  Receipt Date: 20151120
  Transmission Date: 20160304
  Serious: Yes (Other)
  Sender: FDA-Public Use
  Company Number: US-BAUSCH-BL-2015-027003

PATIENT
  Age: 9 Year
  Sex: Female

DRUGS (7)
  1. LOMUSTINE. [Concomitant]
     Active Substance: LOMUSTINE
     Indication: MEDULLOBLASTOMA
  2. CYCLOPHOSPHAMIDE. [Concomitant]
     Active Substance: CYCLOPHOSPHAMIDE
     Indication: MEDULLOBLASTOMA
  3. CISPLATIN. [Concomitant]
     Active Substance: CISPLATIN
     Indication: MEDULLOBLASTOMA
  4. VINCRISTINE [Concomitant]
     Active Substance: VINCRISTINE
     Indication: MEDULLOBLASTOMA
  5. ETOPOSIDE. [Concomitant]
     Active Substance: ETOPOSIDE
     Indication: MEDULLOBLASTOMA
  6. CIS-RETINOIC ACID [Suspect]
     Active Substance: UNSPECIFIED INGREDIENT
     Indication: MEDULLOBLASTOMA
     Dosage: ELEVEN 14-DAY CYCLES (180 MG/M 2 PER DAY) OVER A 13-MONTH PERIOD FOR A CUMULATIVE DOSE OF 17,360 MG
     Route: 065
  7. CARBOPLATIN. [Concomitant]
     Active Substance: CARBOPLATIN
     Indication: MEDULLOBLASTOMA

REACTIONS (3)
  - Epiphyses premature fusion [Unknown]
  - Hypothyroidism [Unknown]
  - Growth hormone deficiency [Unknown]
